FAERS Safety Report 19920777 (Version 1)
Quarter: 2021Q4

REPORT INFORMATION
  Report Type: Spontaneous
  Country: TR (occurrence: TR)
  Receive Date: 20211005
  Receipt Date: 20211005
  Transmission Date: 20220303
  Serious: Yes (Hospitalization, Other)
  Sender: FDA-Public Use
  Company Number: TR-ABBVIE-21K-161-4098639-00

PATIENT
  Age: 30 Year
  Sex: Male

DRUGS (5)
  1. VALPROATE SODIUM [Interacting]
     Active Substance: VALPROATE SODIUM
     Indication: Epilepsy
     Route: 065
  2. VALPROATE SODIUM [Interacting]
     Active Substance: VALPROATE SODIUM
     Route: 065
  3. CLOZAPINE [Interacting]
     Active Substance: CLOZAPINE
     Indication: Psychotic disorder
     Route: 065
  4. CLOZAPINE [Interacting]
     Active Substance: CLOZAPINE
     Route: 065
  5. RISPERIDONE [Suspect]
     Active Substance: RISPERIDONE
     Indication: Product used for unknown indication
     Route: 065

REACTIONS (4)
  - Hallucination, visual [Recovered/Resolved]
  - Hyponatraemic encephalopathy [Recovered/Resolved]
  - Drug interaction [Recovered/Resolved]
  - Hyponatraemia [Recovered/Resolved]
